FAERS Safety Report 12278474 (Version 2)
Quarter: 2016Q2

REPORT INFORMATION
  Report Type: Spontaneous
  Country: CN (occurrence: CN)
  Receive Date: 20160418
  Receipt Date: 20160429
  Transmission Date: 20160815
  Serious: Yes (Other)
  Sender: FDA-Public Use
  Company Number: CN-VALIDUS PHARMACEUTICALS LLC-CN-2016VAL001062

PATIENT

DRUGS (6)
  1. GLUCOBAY [Concomitant]
     Active Substance: ACARBOSE
     Indication: PRODUCT USED FOR UNKNOWN INDICATION
  2. BAYASPIRIN [Concomitant]
     Active Substance: ASPIRIN
     Indication: PRODUCT USED FOR UNKNOWN INDICATION
  3. LOTENSIN [Suspect]
     Active Substance: BENAZEPRIL HYDROCHLORIDE
     Dosage: 0.5 DF, QD
     Route: 048
     Dates: end: 20160412
  4. LOTENSIN [Suspect]
     Active Substance: BENAZEPRIL HYDROCHLORIDE
     Dosage: 0.75 DF, QD
     Route: 048
     Dates: start: 20160412
  5. SIMVASTATIN. [Concomitant]
     Active Substance: SIMVASTATIN
     Indication: PRODUCT USED FOR UNKNOWN INDICATION
  6. LOTENSIN [Suspect]
     Active Substance: BENAZEPRIL HYDROCHLORIDE
     Indication: HYPERTENSION
     Dosage: 0.25 DF, QD
     Route: 048
     Dates: start: 201011

REACTIONS (4)
  - Blood pressure systolic increased [Recovered/Resolved]
  - Insomnia [Recovered/Resolved]
  - Wrong technique in product usage process [Recovered/Resolved]
  - Drug ineffective [Recovered/Resolved]

NARRATIVE: CASE EVENT DATE: 201011
